FAERS Safety Report 7767853-0 (Version None)
Quarter: 2011Q3

REPORT INFORMATION
  Report Type: 
  Country: None (occurrence: None)
  Receive Date: 20110922
  Receipt Date: 20110621
  Transmission Date: 20111222
  Serious: No
  Sender: FDA-Public Use
  Company Number: US-ASTRAZENECA-2010SE30311

PATIENT
  Age: 26 Year
  Sex: Male
  Weight: 70.3 kg

DRUGS (10)
  1. SEROQUEL [Suspect]
     Route: 048
  2. DIAZAPAM [Concomitant]
  3. ADDERALL 10 [Concomitant]
  4. MORPHINE SULFATE [Concomitant]
  5. SEROQUEL [Suspect]
     Indication: INSOMNIA
     Route: 048
  6. SEROQUEL [Suspect]
     Route: 048
  7. SEROQUEL [Suspect]
     Route: 048
  8. SEROQUEL [Suspect]
     Indication: SLEEP DISORDER
     Route: 048
  9. SEROQUEL [Suspect]
     Route: 048
  10. TRAZODONE HCL [Concomitant]

REACTIONS (4)
  - INSOMNIA [None]
  - SOMNOLENCE [None]
  - INCORRECT DOSE ADMINISTERED [None]
  - DRUG DOSE OMISSION [None]
